FAERS Safety Report 4950568-1 (Version None)
Quarter: 2006Q1

REPORT INFORMATION
  Report Type: 
  Country: None (occurrence: None)
  Receive Date: 20060321
  Receipt Date: 20060321
  Transmission Date: 20060701
  Serious: Yes (Hospitalization)
  Sender: FDA-Public Use
  Company Number: None

PATIENT
  Age: 65 Year
  Sex: Male
  Weight: 62.5964 kg

DRUGS (14)
  1. LISINOPRIL [Suspect]
     Indication: HYPERTENSION
     Dosage: 5 MG PO DAILY
     Route: 048
  2. ATIVAN [Concomitant]
  3. JEVITY [Concomitant]
  4. DILANTIN [Concomitant]
  5. CEROVITE LIQ [Concomitant]
  6. METOPROLOL [Concomitant]
  7. REGLAN [Concomitant]
  8. ULTRAM [Concomitant]
  9. KEPPRA [Concomitant]
  10. PROSTAT [Concomitant]
  11. PEPCID [Concomitant]
  12. ASPIRIN [Concomitant]
  13. SYNTHROID [Concomitant]
  14. DEPAKENE [Concomitant]

REACTIONS (3)
  - ANGIONEUROTIC OEDEMA [None]
  - DRUG TOXICITY [None]
  - SWELLING FACE [None]
